FAERS Safety Report 7544513-2 (Version None)
Quarter: 2011Q2

REPORT INFORMATION
  Report Type: 
  Country: None (occurrence: None)
  Receive Date: 20110613
  Receipt Date: 20110530
  Transmission Date: 20111010
  Serious: Yes (Hospitalization)
  Sender: FDA-Public Use
  Company Number: JP-MERCK-1103USA03772

PATIENT
  Age: 87 Year
  Sex: Female

DRUGS (12)
  1. KETOPROFEN [Concomitant]
     Indication: ANALGESIC THERAPY
     Route: 061
  2. CELECOXIB [Concomitant]
     Indication: BACK PAIN
     Route: 048
     Dates: start: 20110202, end: 20110221
  3. GASLON [Concomitant]
     Indication: GASTRITIS
     Route: 048
     Dates: end: 20110131
  4. ETODOLAC [Concomitant]
     Indication: ANALGESIC THERAPY
     Route: 048
     Dates: end: 20110131
  5. EVISTA [Concomitant]
     Indication: OSTEOPOROSIS
     Route: 048
     Dates: start: 20110202, end: 20110208
  6. MAGMITT [Concomitant]
     Indication: CONSTIPATION
     Route: 048
     Dates: start: 20110223
  7. LORCAM [Concomitant]
     Indication: ANALGESIC THERAPY
     Route: 048
     Dates: start: 20110225
  8. FOSAMAX [Suspect]
     Indication: OSTEOPOROSIS
     Route: 048
     Dates: start: 20090101, end: 20110131
  9. ALSIODOL [Concomitant]
     Indication: OSTEOPOROSIS
     Route: 048
     Dates: end: 20110131
  10. ZOLPIDEM [Concomitant]
     Indication: INSOMNIA
     Route: 048
  11. CALFINA [Concomitant]
     Indication: OSTEOPOROSIS
     Route: 048
     Dates: start: 20110202
  12. SELBEX [Concomitant]
     Indication: GASTRITIS
     Route: 048
     Dates: start: 20110202, end: 20110221

REACTIONS (1)
  - FEMUR FRACTURE [None]
